FAERS Safety Report 4587943-3 (Version None)
Quarter: 2005Q1

REPORT INFORMATION
  Report Type: 
  Country: None (occurrence: None)
  Receive Date: 20050215
  Receipt Date: 20050131
  Transmission Date: 20050727
  Serious: Yes (Life-Threatening, Hospitalization)
  Sender: FDA-Public Use
  Company Number: 2003-DE-04754DE

PATIENT
  Age: 74 Year
  Sex: Male

DRUGS (5)
  1. SPIRIVA [Suspect]
     Indication: CHRONIC OBSTRUCTIVE PULMONARY DISEASE
     Dosage: 18 MCG (18 MCG, 1 IN 1 D)
     Route: 055
  2. ATROVENT             (IPRATROPIUM BROMIDE) (AE) [Concomitant]
  3. SEREVENT [Concomitant]
     Route: 055
  4. BRONCHORETARD 350             (THEOPHYLLINE) (KA) [Concomitant]
  5. PREDNISONE TAB [Concomitant]

REACTIONS (2)
  - CONSTIPATION [None]
  - ILEUS PARALYTIC [None]
